FAERS Safety Report 9643059 (Version 4)
Quarter: 2013Q4

REPORT INFORMATION
  Report Type: Report from Study
  Country: CA (occurrence: CA)
  Receive Date: 20131024
  Receipt Date: 20131231
  Transmission Date: 20140711
  Serious: Yes (Hospitalization)
  Sender: FDA-Public Use
  Company Number: CA-JNJFOC-20131011401

PATIENT
  Sex: Female

DRUGS (5)
  1. SIMPONI [Suspect]
     Indication: RHEUMATOID ARTHRITIS
     Route: 058
     Dates: start: 20111114, end: 201308
  2. ATORVASTATIN [Concomitant]
     Indication: BLOOD CHOLESTEROL INCREASED
     Route: 048
  3. ACETYL SALICYLIC ACID [Concomitant]
     Indication: CARDIOVASCULAR EVENT PROPHYLAXIS
     Route: 048
  4. SYNTHROID [Concomitant]
     Indication: HYPOTHYROIDISM
     Route: 048
  5. VITALUX NOS [Concomitant]
     Indication: ROUTINE HEALTH MAINTENANCE
     Route: 048

REACTIONS (3)
  - Urosepsis [Recovered/Resolved]
  - Drug ineffective [Unknown]
  - Influenza [Unknown]
